FAERS Safety Report 12041589 (Version 1)
Quarter: 2016Q1

REPORT INFORMATION
  Report Type: Spontaneous
  Country: US (occurrence: US)
  Receive Date: 20160208
  Receipt Date: 20160208
  Transmission Date: 20160526
  Serious: Yes (Disabling)
  Sender: FDA-Public Use
  Company Number: US-DRREDDYS-USA/USA/15/0045798

PATIENT
  Age: 54 Year
  Sex: Female

DRUGS (3)
  1. RANOLAZINE [Suspect]
     Active Substance: RANOLAZINE
     Indication: ANGINA PECTORIS
     Route: 065
  2. SIMVASTATIN. [Suspect]
     Active Substance: SIMVASTATIN
     Indication: DYSLIPIDAEMIA
     Route: 065
  3. RANOLAZINE [Suspect]
     Active Substance: RANOLAZINE
     Route: 065

REACTIONS (1)
  - Myopathy [Recovering/Resolving]
